FAERS Safety Report 4830961-8 (Version None)
Quarter: 2005Q4

REPORT INFORMATION
  Report Type: 
  Country: None (occurrence: None)
  Receive Date: 20051114
  Receipt Date: 20051028
  Transmission Date: 20060501
  Serious: Yes (Hospitalization, Other)
  Sender: FDA-Public Use
  Company Number: 2005-02247

PATIENT
  Age: 67 Year
  Sex: Male

DRUGS (1)
  1. VELCADE [Suspect]
     Dosage: 1.30 MG/M2, INTRAVENOUS
     Route: 042

REACTIONS (2)
  - CLOSTRIDIUM COLITIS [None]
  - KLEBSIELLA SEPSIS [None]
